FAERS Safety Report 20911924 (Version 1)
Quarter: 2022Q2

REPORT INFORMATION
  Report Type: Spontaneous
  Country: CA (occurrence: CA)
  Receive Date: 20220603
  Receipt Date: 20220603
  Transmission Date: 20220720
  Serious: Yes (Other)
  Sender: FDA-Public Use
  Company Number: CA-SAMSUNG BIOEPIS-SB-2022-13119

PATIENT
  Age: 89 Year
  Sex: Female

DRUGS (1)
  1. ADALIMUMAB [Suspect]
     Active Substance: ADALIMUMAB
     Indication: Rheumatoid arthritis
     Route: 058

REACTIONS (15)
  - Breast cancer [Unknown]
  - Back pain [Unknown]
  - Bronchial disorder [Unknown]
  - Dyspnoea [Unknown]
  - Eczema [Unknown]
  - Fatigue [Unknown]
  - Feeling abnormal [Unknown]
  - Finger deformity [Unknown]
  - Grip strength decreased [Unknown]
  - Headache [Unknown]
  - Hypoaesthesia [Unknown]
  - Injection site erythema [Unknown]
  - Injection site pain [Unknown]
  - Musculoskeletal disorder [Unknown]
  - Oedema peripheral [Unknown]
